FAERS Safety Report 5866435-5 (Version None)
Quarter: 2008Q3

REPORT INFORMATION
  Report Type: 
  Country: None (occurrence: None)
  Receive Date: 20080902
  Receipt Date: 20080820
  Transmission Date: 20090109
  Serious: Yes (Other)
  Sender: FDA-Public Use
  Company Number: AU-RANBAXY-2008RR-17532

PATIENT

DRUGS (2)
  1. MINOCYCLINE HCL [Suspect]
     Dosage: 50 MG, BID
     Route: 048
  2. CARBIMAZOLE [Concomitant]
     Dosage: 10 MG, TID
     Route: 048

REACTIONS (4)
  - HYPERTHYROIDISM [None]
  - THYROID CANCER [None]
  - THYROID DISORDER [None]
  - THYROIDITIS [None]
